FAERS Safety Report 9742799 (Version 2)
Quarter: 2013Q4

REPORT INFORMATION
  Report Type: Spontaneous
  Country: GB (occurrence: GB)
  Receive Date: 20131210
  Receipt Date: 20131223
  Transmission Date: 20140711
  Serious: Yes (Death, Life-Threatening, Hospitalization, Other)
  Sender: FDA-Public Use
  Company Number: GB-JNJFOC-20131204200

PATIENT
  Age: 92 Year
  Sex: Female
  Weight: 50 kg

DRUGS (18)
  1. XARELTO [Suspect]
     Indication: CEREBROVASCULAR ACCIDENT PROPHYLAXIS
     Route: 048
     Dates: start: 20131118, end: 20131124
  2. XARELTO [Suspect]
     Indication: CEREBROVASCULAR ACCIDENT PROPHYLAXIS
     Route: 048
     Dates: start: 20131105, end: 20131117
  3. XARELTO [Suspect]
     Indication: ATRIAL FIBRILLATION
     Route: 048
     Dates: start: 20131118, end: 20131124
  4. XARELTO [Suspect]
     Indication: ATRIAL FIBRILLATION
     Route: 048
     Dates: start: 20131105, end: 20131117
  5. XARELTO [Suspect]
     Indication: CARDIOVASCULAR DISORDER
     Route: 048
     Dates: start: 20131118, end: 20131124
  6. XARELTO [Suspect]
     Indication: CARDIOVASCULAR DISORDER
     Route: 048
     Dates: start: 20131105, end: 20131117
  7. FUSIDATE SODIUM [Concomitant]
     Indication: ARTHRITIS BACTERIAL
     Route: 042
  8. FUSIDATE SODIUM [Concomitant]
     Indication: ARTHRITIS BACTERIAL
     Route: 042
     Dates: start: 20131114, end: 20131121
  9. FLUCLOXACILLIN [Concomitant]
     Indication: ARTHRITIS BACTERIAL
     Route: 042
     Dates: start: 20131112
  10. ALLOPURINOL [Concomitant]
     Route: 065
  11. COLCHICINE [Concomitant]
     Route: 065
  12. DIGOXIN [Concomitant]
     Route: 065
  13. DOXAZOSIN [Concomitant]
     Route: 065
  14. FUROSEMIDE [Concomitant]
     Route: 065
  15. LISINOPRIL [Concomitant]
     Route: 065
  16. PARACETAMOL [Concomitant]
     Route: 065
  17. SIMVASTATIN [Concomitant]
     Route: 065
     Dates: start: 20131114
  18. WARFARIN [Concomitant]
     Route: 065

REACTIONS (7)
  - Drug-induced liver injury [Fatal]
  - Jaundice [Unknown]
  - Creatinine renal clearance decreased [Unknown]
  - Acidosis [Unknown]
  - Encephalopathy [Unknown]
  - Hypocoagulable state [Unknown]
  - Hepatic enzyme increased [Unknown]
